FAERS Safety Report 12976445 (Version 1)
Quarter: 2016Q4

REPORT INFORMATION
  Report Type: Spontaneous
  Country: US (occurrence: US)
  Receive Date: 20161127
  Receipt Date: 20161127
  Transmission Date: 20170207
  Serious: Yes (Hospitalization, Other)
  Sender: FDA-Public Use
  Company Number: PHHY2016US160995

PATIENT
  Age: 69 Year
  Sex: Male

DRUGS (6)
  1. MITOXANTRONE [Suspect]
     Active Substance: MITOXANTRONE HYDROCHLORIDE
     Indication: MYELODYSPLASTIC SYNDROME
     Route: 065
  2. FILGRASTIM [Suspect]
     Active Substance: FILGRASTIM
     Indication: MYELODYSPLASTIC SYNDROME
     Route: 065
  3. CYTARABINE. [Suspect]
     Active Substance: CYTARABINE
     Indication: MYELODYSPLASTIC SYNDROME
     Route: 065
  4. VANCOMYCIN [Suspect]
     Active Substance: VANCOMYCIN
     Indication: CLOSTRIDIUM BACTERAEMIA
     Dosage: 1250 MG, Q12H
     Route: 065
  5. VANCOMYCIN [Suspect]
     Active Substance: VANCOMYCIN
     Indication: ENTEROCOCCAL BACTERAEMIA
  6. CLADRIBINE. [Suspect]
     Active Substance: CLADRIBINE
     Indication: MYELODYSPLASTIC SYNDROME
     Route: 065

REACTIONS (6)
  - Febrile neutropenia [Recovered/Resolved]
  - Pancytopenia [Recovered/Resolved]
  - Clostridium bacteraemia [Recovered/Resolved]
  - Drug resistance [Unknown]
  - Pneumonia fungal [Unknown]
  - Enterococcal bacteraemia [Recovered/Resolved]
